FAERS Safety Report 4841120-7 (Version None)
Quarter: 2005Q4

REPORT INFORMATION
  Report Type: 
  Country: None (occurrence: None)
  Receive Date: 20051130
  Receipt Date: 20051005
  Transmission Date: 20060501
  Serious: No
  Sender: FDA-Public Use
  Company Number: US-BRISTOL-MYERS SQUIBB COMPANY-13134390

PATIENT
  Age: 34 Year
  Sex: Male
  Weight: 75 kg

DRUGS (5)
  1. ABILIFY [Suspect]
     Indication: BIPOLAR DISORDER
     Route: 048
     Dates: start: 20051003
  2. ASPIRIN [Concomitant]
  3. PROTONIX [Concomitant]
  4. TEGRETOL [Concomitant]
     Dates: start: 20050301
  5. REMERON [Concomitant]

REACTIONS (1)
  - HYPERHIDROSIS [None]
